FAERS Safety Report 7693832-8 (Version None)
Quarter: 2011Q3

REPORT INFORMATION
  Report Type: 
  Country: None (occurrence: None)
  Receive Date: 20110815
  Receipt Date: 20110807
  Transmission Date: 20111222
  Serious: Yes (Hospitalization, Other)
  Sender: FDA-Public Use
  Company Number: 2011SP019498

PATIENT
  Sex: Female

DRUGS (4)
  1. REBETOL [Suspect]
     Indication: HEPATITIS
     Dates: start: 20030101, end: 20030501
  2. REBETOL [Suspect]
     Indication: HEPATITIS
     Dates: start: 20070101
  3. PEG-INTRON [Suspect]
     Indication: HEPATITIS
     Dates: start: 20070101
  4. PEG-INTRON [Suspect]
     Indication: HEPATITIS
     Dates: start: 20030101, end: 20030501

REACTIONS (19)
  - CLOSTRIDIAL INFECTION [None]
  - BODY TEMPERATURE INCREASED [None]
  - STAPHYLOCOCCAL INFECTION [None]
  - HEPATIC STEATOSIS [None]
  - THYROID FUNCTION TEST ABNORMAL [None]
  - HYPOPHAGIA [None]
  - MENTAL IMPAIRMENT [None]
  - ANAEMIA [None]
  - VOMITING [None]
  - EYE DISORDER [None]
  - RASH [None]
  - PAIN [None]
  - INSOMNIA [None]
  - VISION BLURRED [None]
  - CRYING [None]
  - HEPATITIS C RNA INCREASED [None]
  - HYSTERECTOMY [None]
  - INJECTION SITE ERYTHEMA [None]
  - RESTLESS LEGS SYNDROME [None]
